FAERS Safety Report 5247416-1 (Version None)
Quarter: 2007Q1

REPORT INFORMATION
  Report Type: 
  Country: None (occurrence: None)
  Receive Date: 20070223
  Receipt Date: 20070223
  Transmission Date: 20070707
  Serious: Yes (Death)
  Sender: FDA-Public Use
  Company Number: None

PATIENT
  Sex: Female
  Weight: 86.4 kg

DRUGS (3)
  1. FLUDARABINE [Suspect]
     Indication: BONE MARROW CONDITIONING REGIMEN
     Dosage: 60 MG DAILY IV DRIP
     Route: 041
     Dates: start: 20061212, end: 20061216
  2. CAMPATH [Suspect]
     Dosage: 20 MG DAILY IV DRIP
     Route: 041
     Dates: start: 20061227, end: 20061227
  3. MELPHALAN [Suspect]
     Dosage: 280 MG DAILY IV DRIP
     Route: 041
     Dates: start: 20061227, end: 20061227

REACTIONS (9)
  - CEREBROVASCULAR ACCIDENT [None]
  - HYPOVENTILATION [None]
  - INFECTION [None]
  - INTERSTITIAL LUNG DISEASE [None]
  - MULTI-ORGAN FAILURE [None]
  - PLEURAL EFFUSION [None]
  - PNEUMONIA [None]
  - POST PROCEDURAL COMPLICATION [None]
  - PULMONARY OEDEMA [None]
